FAERS Safety Report 9193825 (Version 1)
Quarter: 2013Q1

REPORT INFORMATION
  Report Type: Spontaneous
  Country: FR (occurrence: FR)
  Receive Date: 20130327
  Receipt Date: 20130327
  Transmission Date: 20140127
  Serious: Yes (Other)
  Sender: FDA-Public Use
  Company Number: FR-ASTRAZENECA-2013SE19268

PATIENT
  Sex: Male

DRUGS (3)
  1. XEROQUEL [Suspect]
     Indication: BIPOLAR DISORDER
     Route: 048
  2. LAMICTAL [Concomitant]
     Route: 048
  3. UNSPECIFIED THYMOREGULATOR [Concomitant]

REACTIONS (1)
  - Delirium [Unknown]
